FAERS Safety Report 13188447 (Version 1)
Quarter: 2017Q1

REPORT INFORMATION
  Report Type: Spontaneous
  Country: US (occurrence: US)
  Receive Date: 20170203
  Receipt Date: 20170203
  Transmission Date: 20170428
  Serious: Yes (Hospitalization, Disabling, Other)
  Sender: FDA-Public Use
  Company Number: None

PATIENT
  Age: 51 Year
  Sex: Male
  Weight: 94.5 kg

DRUGS (6)
  1. LISINOPRIL. [Concomitant]
     Active Substance: LISINOPRIL
  2. MIRALAX [Suspect]
     Active Substance: POLYETHYLENE GLYCOL 3350
     Indication: COLONOSCOPY
     Dosage: QUANTITY:1 DOSE;?
     Route: 048
     Dates: start: 20160503, end: 20160512
  3. ADDERALL XR [Concomitant]
     Active Substance: AMPHETAMINE ASPARTATE\AMPHETAMINE SULFATE\DEXTROAMPHETAMINE SACCHARATE\DEXTROAMPHETAMINE SULFATE
  4. ASPIRIN. [Concomitant]
     Active Substance: ASPIRIN
  5. CRESTOR [Concomitant]
     Active Substance: ROSUVASTATIN CALCIUM
  6. METEPROLOL [Concomitant]

REACTIONS (11)
  - Paranoia [None]
  - Weight decreased [None]
  - Muscle spasms [None]
  - Bowel movement irregularity [None]
  - Gastrointestinal pain [None]
  - Stress [None]
  - Abdominal pain [None]
  - Anxiety [None]
  - Delusion [None]
  - Psychotic disorder [None]
  - Constipation [None]

NARRATIVE: CASE EVENT DATE: 20160512
